FAERS Safety Report 25503822 (Version 1)
Quarter: 2025Q3

REPORT INFORMATION
  Report Type: Spontaneous
  Country: TR (occurrence: TR)
  Receive Date: 20250702
  Receipt Date: 20250702
  Transmission Date: 20251021
  Serious: Yes (Hospitalization, Other)
  Sender: MYLAN
  Company Number: TR-MYLANLABS-2025M1054566

PATIENT
  Age: 16 Year
  Sex: Female

DRUGS (8)
  1. LUSTRAL [Suspect]
     Active Substance: SERTRALINE HYDROCHLORIDE
     Indication: Attention deficit hyperactivity disorder
     Dosage: 600 MILLIGRAM, QD
  2. LUSTRAL [Suspect]
     Active Substance: SERTRALINE HYDROCHLORIDE
     Dosage: 600 MILLIGRAM, QD
     Route: 065
  3. LUSTRAL [Suspect]
     Active Substance: SERTRALINE HYDROCHLORIDE
     Dosage: 600 MILLIGRAM, QD
     Route: 065
  4. LUSTRAL [Suspect]
     Active Substance: SERTRALINE HYDROCHLORIDE
     Dosage: 600 MILLIGRAM, QD
  5. LAMOTRIGINE [Suspect]
     Active Substance: LAMOTRIGINE
     Indication: Attention deficit hyperactivity disorder
  6. LAMOTRIGINE [Suspect]
     Active Substance: LAMOTRIGINE
     Route: 065
  7. LAMOTRIGINE [Suspect]
     Active Substance: LAMOTRIGINE
     Route: 065
  8. LAMOTRIGINE [Suspect]
     Active Substance: LAMOTRIGINE

REACTIONS (4)
  - Suicide attempt [Recovering/Resolving]
  - Serotonin syndrome [Unknown]
  - Intentional overdose [Unknown]
  - Off label use [Unknown]
